FAERS Safety Report 7644087-1 (Version None)
Quarter: 2011Q3

REPORT INFORMATION
  Report Type: 
  Country: None (occurrence: None)
  Receive Date: 20110729
  Receipt Date: 20110721
  Transmission Date: 20111222
  Serious: Yes (Hospitalization)
  Sender: FDA-Public Use
  Company Number: JP-JNJFOC-20110709759

PATIENT
  Age: 39 Year
  Sex: Male

DRUGS (3)
  1. PROMETHAZINE HCL [Concomitant]
     Indication: INSOMNIA
     Route: 048
     Dates: start: 20110425
  2. LEVOMEPROMAZINE MALEATE [Concomitant]
     Indication: INSOMNIA
     Route: 048
     Dates: start: 20110425
  3. INVEGA [Suspect]
     Indication: SCHIZOPHRENIA
     Route: 048
     Dates: start: 20110602, end: 20110708

REACTIONS (3)
  - CONVULSION [None]
  - RHABDOMYOLYSIS [None]
  - WATER INTOXICATION [None]
